FAERS Safety Report 13609072 (Version 1)
Quarter: 2017Q2

REPORT INFORMATION
  Report Type: Spontaneous
  Country: GB (occurrence: GB)
  Receive Date: 20170602
  Receipt Date: 20170602
  Transmission Date: 20170830
  Serious: Yes (Other)
  Sender: FDA-Public Use
  Company Number: PHFR2017GB004120

PATIENT
  Age: 31 Year
  Sex: Female

DRUGS (2)
  1. COLECALCIFEROL [Concomitant]
     Active Substance: CHOLECALCIFEROL
     Indication: PRODUCT USED FOR UNKNOWN INDICATION
     Dosage: UNK
     Route: 065
  2. FINGYA [Suspect]
     Active Substance: FINGOLIMOD
     Indication: RELAPSING-REMITTING MULTIPLE SCLEROSIS
     Dosage: 500 UG, QD
     Route: 048
     Dates: start: 20140701

REACTIONS (1)
  - Malignant melanoma in situ [Not Recovered/Not Resolved]

NARRATIVE: CASE EVENT DATE: 20170301
